FAERS Safety Report 9526825 (Version 1)
Quarter: 2013Q3

REPORT INFORMATION
  Report Type: Spontaneous
  Country: DE (occurrence: DE)
  Receive Date: 20130916
  Receipt Date: 20130916
  Transmission Date: 20140515
  Serious: Yes (Other)
  Sender: FDA-Public Use
  Company Number: DE-MYLANLABS-2013S1020060

PATIENT
  Sex: Male

DRUGS (5)
  1. OXALIPLATIN [Suspect]
     Indication: METASTATIC CARCINOMA OF THE BLADDER
     Route: 065
  2. IRINOTECAN [Suspect]
     Indication: METASTATIC CARCINOMA OF THE BLADDER
     Route: 065
  3. FLUOROURACIL [Suspect]
     Indication: METASTATIC CARCINOMA OF THE BLADDER
     Route: 065
  4. FOLINIC ACID [Suspect]
     Indication: METASTATIC CARCINOMA OF THE BLADDER
     Route: 065
  5. CETUXIMAB [Suspect]
     Indication: METASTATIC CARCINOMA OF THE BLADDER
     Route: 065

REACTIONS (2)
  - Ill-defined disorder [Unknown]
  - Rash [Unknown]
